FAERS Safety Report 5563070-3 (Version None)
Quarter: 2007Q4

REPORT INFORMATION
  Report Type: 
  Country: None (occurrence: None)
  Receive Date: 20071217
  Receipt Date: 20071211
  Transmission Date: 20080405
  Serious: Yes (Hospitalization)
  Sender: FDA-Public Use
  Company Number: A0698325A

PATIENT
  Age: 62 Year
  Sex: Male

DRUGS (9)
  1. CARVEDILOL [Suspect]
     Indication: DRUG USE FOR UNKNOWN INDICATION
     Route: 065
     Dates: start: 20031201
  2. ASPIRIN [Concomitant]
  3. ZETIA [Concomitant]
  4. LIPITOR [Concomitant]
  5. LASIX [Concomitant]
  6. XANAX [Concomitant]
  7. COMBIVENT [Concomitant]
  8. POLYETHYLENE GLYCOL [Concomitant]
  9. HYDROCODONE BITARTRATE [Concomitant]

REACTIONS (4)
  - CHEST DISCOMFORT [None]
  - DYSPNOEA [None]
  - EJECTION FRACTION DECREASED [None]
  - OVERDOSE [None]
